FAERS Safety Report 22194608 (Version 3)
Quarter: 2023Q2

REPORT INFORMATION
  Report Type: Spontaneous
  Country: US (occurrence: US)
  Receive Date: 20230411
  Receipt Date: 20230607
  Transmission Date: 20230722
  Serious: Yes (Hospitalization, Other)
  Sender: FDA-Public Use
  Company Number: US-002147023-NVSC2023US079207

PATIENT
  Sex: Female

DRUGS (3)
  1. VOTRIENT [Suspect]
     Active Substance: PAZOPANIB HYDROCHLORIDE
     Indication: Bone neoplasm
     Dosage: 800 MG, QD
     Route: 048
     Dates: start: 20230127
  2. VOTRIENT [Suspect]
     Active Substance: PAZOPANIB HYDROCHLORIDE
     Indication: Soft tissue neoplasm
     Dosage: 800 MG, QD
     Route: 048
     Dates: start: 202301
  3. VOTRIENT [Suspect]
     Active Substance: PAZOPANIB HYDROCHLORIDE
     Indication: Neoplasm skin
     Dosage: 600 MG, QD
     Route: 048
     Dates: start: 202302

REACTIONS (12)
  - Infection [Unknown]
  - Hypothyroidism [Unknown]
  - Nausea [Unknown]
  - Blood pressure increased [Unknown]
  - Lethargy [Unknown]
  - Abdominal pain [Unknown]
  - Diarrhoea [Unknown]
  - Arthralgia [Unknown]
  - Illness [Unknown]
  - Heart rate increased [Unknown]
  - Insomnia [Unknown]
  - Off label use [Unknown]
